FAERS Safety Report 6178496-7 (Version None)
Quarter: 2009Q2

REPORT INFORMATION
  Report Type: 
  Country: None (occurrence: None)
  Receive Date: 20090430
  Receipt Date: 20090415
  Transmission Date: 20091009
  Serious: Yes (Other)
  Sender: FDA-Public Use
  Company Number: 2009S1006786

PATIENT
  Age: 94 Year
  Sex: Female

DRUGS (10)
  1. ALENDRONIC ACID (ALENDRONIC ACID) [Suspect]
     Indication: OSTEOPOROSIS
     Dosage: 70 MG; ORAL
     Route: 048
     Dates: start: 20030509, end: 20090209
  2. ADCAL-D3 (LEKOVIT CA) (CON.) [Concomitant]
  3. AMITRIPTYLINE (AMITRIPTYLINE) (CON.) [Concomitant]
  4. BENDROFLUMETHIAZIDE (BENDROFLUMETHIAZIDE) (CON.) [Concomitant]
  5. LERCANIDIPINE (LERCANIDIPINE) (CON.) [Concomitant]
  6. OMEPRAZOLE (OMEPRAZOLE) (CON.) [Concomitant]
  7. PARACETAMOL (PARACETAMOL) (CON.) [Concomitant]
  8. SENNA (SENNA ALEXANDRINA) (CON.) [Concomitant]
  9. TEMAZEPAM (TEMAZEPAM) (CON.) [Concomitant]
  10. TRAMADOL (TRAMADOL) (CON.) [Concomitant]

REACTIONS (2)
  - ARTHRALGIA [None]
  - OSTEONECROSIS [None]
